FAERS Safety Report 7369443-0 (Version None)
Quarter: 2011Q1

REPORT INFORMATION
  Report Type: 
  Country: None (occurrence: None)
  Receive Date: 20110323
  Receipt Date: 20090930
  Transmission Date: 20110831
  Serious: Yes (Other)
  Sender: FDA-Public Use
  Company Number: US-BAYER-2011-006293

PATIENT
  Sex: Male
  Weight: 86 kg

DRUGS (30)
  1. CAPTOPRIL [Concomitant]
     Dosage: UNK UNK, UNK
     Route: 065
  2. MICRO-K [Concomitant]
     Dosage: 10 MEQ, UNK
     Route: 065
  3. LASIX [Concomitant]
     Dosage: DURING SURGERY
     Route: 042
  4. ISORDIL [Concomitant]
     Dosage: 10 MG, UNK
     Route: 065
  5. COMPAZINE [Concomitant]
  6. DOBUTAMINE [Concomitant]
     Dosage: DURING SURGERY
     Route: 042
  7. MANNITOL [Concomitant]
  8. LOTENSIN [Concomitant]
     Dosage: 20 MG, UNK
     Route: 065
  9. PHENYLEPHRINE [Concomitant]
     Dosage: DURING SURGERY
     Route: 042
  10. NORVASC [Concomitant]
     Dosage: 10 MG, UNK
     Route: 065
  11. NITROGLYCERIN [Concomitant]
     Dosage: 1 G, UNK
     Route: 065
  12. CEFAZOLIN [Concomitant]
     Dosage: 1 G, DURING SURGERY
     Route: 042
  13. VERSED [Concomitant]
     Dosage: DURING SURGERY
     Route: 042
  14. FERROUS SULFATE TAB [Concomitant]
     Dosage: 325 MG, UNK
  15. SODIUM BICARBONATE [Concomitant]
  16. TRASYLOL [Suspect]
     Indication: CORONARY ARTERY BYPASS
     Dosage: UNK
     Route: 042
     Dates: start: 20050620
  17. APRESOLINE [Concomitant]
     Dosage: 10 MG, UNK
     Route: 065
  18. CARVEDILOL [Concomitant]
     Dosage: 6.25 MG, UNK
     Route: 065
  19. VANCOMYCIN [Concomitant]
     Dosage: 1 G, DURING SURGERY
     Route: 042
  20. DOPAMINE [Concomitant]
     Dosage: DURING SURGERY
     Route: 042
  21. FUROSEMIDE [Concomitant]
     Dosage: DURING SURGERY
     Route: 042
  22. PAPAVERINE [Concomitant]
     Dosage: DURING SURGERY
     Route: 042
  23. CATAPRES-TTS-1 [Concomitant]
     Dosage: UNK UNK, UNK
     Route: 065
  24. HEPARIN [Concomitant]
     Dosage: DURING SURGERY
     Route: 042
  25. LASIX [Concomitant]
     Dosage: 80 MG, UNK
     Route: 065
  26. PROTAMINE SULFATE [Concomitant]
     Dosage: DURING SURGERY
     Route: 042
  27. AVAPRO [Concomitant]
     Dosage: 150 MG, UNK
     Route: 065
  28. LABETALOL [Concomitant]
     Dosage: UNK UNK, UNK
     Route: 065
  29. DARVOCET-N 100 [Concomitant]
  30. TYLENOL WITH CODEIN [CAFFEINE,CODEINE PHOSPHATE,PARACETAMOL] [Concomitant]
     Dosage: 30 MG, UNK

REACTIONS (12)
  - PAIN [None]
  - EMOTIONAL DISTRESS [None]
  - INJURY [None]
  - FEAR OF DEATH [None]
  - RENAL INJURY [None]
  - UNEVALUABLE EVENT [None]
  - NERVOUSNESS [None]
  - ANXIETY [None]
  - FEAR [None]
  - MULTI-ORGAN FAILURE [None]
  - RENAL FAILURE [None]
  - DEPRESSION [None]
